FAERS Safety Report 10582103 (Version 1)
Quarter: 2014Q4

REPORT INFORMATION
  Report Type: Spontaneous
  Country: JP (occurrence: JP)
  Receive Date: 20141113
  Receipt Date: 20141113
  Transmission Date: 20150529
  Serious: Yes (Other)
  Sender: FDA-Public Use
  Company Number: JP-WATSON-2014-25026

PATIENT
  Age: 79 Year
  Sex: Male

DRUGS (18)
  1. RINDERON                           /00008501/ [Concomitant]
     Indication: TOXIC SKIN ERUPTION
     Dosage: 3 MG, UNKNOWN
     Route: 048
  2. RINDERON                           /00008501/ [Concomitant]
     Dosage: 3 MG, UNKNOWN
     Route: 048
  3. LEVOFLOXACIN HEMIHYDRATE [Concomitant]
     Active Substance: LEVOFLOXACIN
     Indication: PRODUCT USED FOR UNKNOWN INDICATION
     Dosage: UNK, UNKNOWN
     Route: 065
  4. RAPAFLO [Suspect]
     Active Substance: SILODOSIN
     Indication: DYSURIA
     Dosage: UNK UNK, UNKNOWN
     Route: 048
  5. RINDERON                           /00008501/ [Concomitant]
     Dosage: 3 MG, UNKNOWN
     Route: 048
  6. RINDERON                           /00008501/ [Concomitant]
     Dosage: 1.5 MG, UNKNOWN
     Route: 048
  7. NEO-MINOPHAGEN C [Concomitant]
     Active Substance: AMMONIUM GLYCYRRHIZATE
     Indication: PRODUCT USED FOR UNKNOWN INDICATION
     Route: 042
  8. AMPICILLIN AND SULBACTAM [Concomitant]
     Active Substance: AMPICILLIN SODIUM\SULBACTAM SODIUM
     Indication: PRODUCT USED FOR UNKNOWN INDICATION
     Dosage: UNK, UNKNOWN
     Route: 042
  9. RINDERON                           /00008501/ [Concomitant]
     Dosage: 1.5 MG, UNKNOWN
     Route: 048
  10. RINDERON                           /00008501/ [Concomitant]
     Dosage: 4.5 MG, UNKNOWN
     Route: 048
  11. NEUROTROPIN                        /00398601/ [Concomitant]
     Indication: PRODUCT USED FOR UNKNOWN INDICATION
     Dosage: UNK, UNKNOWN
     Route: 065
  12. RINDERON                           /00008501/ [Concomitant]
     Dosage: 2.25 MG, UNKNOWN
     Route: 048
  13. RINDERON                           /00008501/ [Concomitant]
     Dosage: 2 MG, UNKNOWN
     Route: 048
  14. RINDERON                           /00008501/ [Concomitant]
     Dosage: 1.75 MG, UNKNOWN
     Route: 048
  15. RINDERON                           /00008501/ [Concomitant]
     Dosage: 2.5 MG, UNKNOWN
     Route: 048
  16. RINDERON                           /00008501/ [Concomitant]
     Dosage: 0.5 MG, UNKNOWN
     Route: 048
  17. XYZAL [Concomitant]
     Active Substance: LEVOCETIRIZINE DIHYDROCHLORIDE
     Indication: PRODUCT USED FOR UNKNOWN INDICATION
     Dosage: UNK, UNKNOWN
     Route: 048
  18. MINOCYCLINE HYDROCHLORIDE. [Concomitant]
     Active Substance: MINOCYCLINE HYDROCHLORIDE
     Indication: PRODUCT USED FOR UNKNOWN INDICATION
     Dosage: UNK, UNKNOWN
     Route: 065

REACTIONS (1)
  - Pulmonary tuberculosis [Unknown]
